FAERS Safety Report 8485736-8 (Version None)
Quarter: 2012Q3

REPORT INFORMATION
  Report Type: 
  Country: None (occurrence: None)
  Receive Date: 20120703
  Receipt Date: 20120629
  Transmission Date: 20120928
  Serious: Yes (Life-Threatening, Hospitalization, Other)
  Sender: FDA-Public Use
  Company Number: JP-B.I. PHARMACEUTICALS,INC./RIDGEFIELD-2012-BP-12474NB

PATIENT
  Sex: Female
  Weight: 49 kg

DRUGS (6)
  1. LASIX [Concomitant]
     Indication: CARDIAC FAILURE CHRONIC
     Dosage: 20 MG
     Route: 048
  2. STAYBLA [Concomitant]
     Dosage: 0.2 MG
     Route: 048
  3. INDERAL [Concomitant]
     Dosage: 30 MG
     Route: 048
  4. PRADAXA [Suspect]
     Indication: ATRIAL FIBRILLATION
     Dosage: 220 MG
     Route: 048
     Dates: start: 20120428, end: 20120501
  5. PILSINIC [Concomitant]
     Dosage: 150 MG
     Route: 048
  6. ALFASULY [Concomitant]
     Dosage: 0.5 MCG
     Route: 048

REACTIONS (8)
  - RENAL FAILURE ACUTE [None]
  - CONVULSION [None]
  - VOMITING [None]
  - DEHYDRATION [None]
  - HEPATIC FUNCTION ABNORMAL [None]
  - HYPOGLYCAEMIA [None]
  - HYPERKALAEMIA [None]
  - DEPRESSED LEVEL OF CONSCIOUSNESS [None]
